FAERS Safety Report 16894882 (Version 1)
Quarter: 2019Q4

REPORT INFORMATION
  Report Type: Spontaneous
  Country: US (occurrence: US)
  Receive Date: 20191008
  Receipt Date: 20191008
  Transmission Date: 20200122
  Serious: No
  Sender: FDA-Public Use
  Company Number: US-INDIVIOR US-INDV-114845-2018

PATIENT
  Age: 55 Year
  Sex: Male

DRUGS (5)
  1. BYSTOLIC [Concomitant]
     Active Substance: NEBIVOLOL HYDROCHLORIDE
     Indication: PRODUCT USED FOR UNKNOWN INDICATION
     Dosage: 10 MG UNK
     Route: 065
  2. NOVOCAINE [Suspect]
     Active Substance: PROCAINE
     Indication: PRODUCT USED FOR UNKNOWN INDICATION
     Dosage: UNKNOWN
     Route: 065
     Dates: start: 20181003
  3. SUBOXONE [Suspect]
     Active Substance: BUPRENORPHINE HYDROCHLORIDE\NALOXONE HYDROCHLORIDE
     Indication: DRUG DEPENDENCE
     Dosage: 8 MG THREE TIMES DAILY
     Route: 065
     Dates: start: 2017, end: 20181002
  4. SUBOXONE [Suspect]
     Active Substance: BUPRENORPHINE HYDROCHLORIDE\NALOXONE HYDROCHLORIDE
     Dosage: 8 MG THREE TIMES PER DAY
     Route: 065
     Dates: end: 20181002
  5. NOVOCAINE [Suspect]
     Active Substance: PROCAINE
     Dosage: 6 CATRIDGES OF NOVOCAINE
     Route: 065

REACTIONS (13)
  - Tooth disorder [Unknown]
  - Vomiting [Unknown]
  - Lip swelling [Recovering/Resolving]
  - Drug withdrawal syndrome [Recovered/Resolved]
  - Therapy cessation [Recovered/Resolved]
  - Discomfort [Unknown]
  - Influenza like illness [Unknown]
  - Therapeutic product ineffective [Unknown]
  - Inappropriate schedule of product administration [Recovered/Resolved]
  - Toothache [Unknown]
  - Swelling face [Unknown]
  - Adverse event [Unknown]
  - Muscle tightness [Unknown]

NARRATIVE: CASE EVENT DATE: 2017
